FAERS Safety Report 10625218 (Version 3)
Quarter: 2015Q1

REPORT INFORMATION
  Report Type: Report from Study
  Country: BR (occurrence: BR)
  Receive Date: 20141204
  Receipt Date: 20150223
  Transmission Date: 20150720
  Serious: Yes (Other)
  Sender: FDA-Public Use
  Company Number: PHHY2014BR053776

PATIENT
  Sex: Female
  Weight: 55 kg

DRUGS (7)
  1. SANDOSTATIN LAR DEPOT [Suspect]
     Active Substance: OCTREOTIDE ACETATE
     Indication: ACROMEGALY
     Dosage: 2 DF (20 MG), QD
     Route: 065
  2. TEGRETOL [Suspect]
     Active Substance: CARBAMAZEPINE
     Indication: SEIZURE
     Dosage: 1 DF, QHS (AT NIGHT)
     Route: 065
  3. SANDOSTATIN LAR DEPOT [Suspect]
     Active Substance: OCTREOTIDE ACETATE
     Dosage: 1 DF (30 MG), QMO
     Route: 065
  4. ENALAPRIL [Concomitant]
     Active Substance: ENALAPRIL
     Indication: HYPERTENSION
     Dosage: 2 DF, QD
     Route: 065
  5. SANDOSTATIN LAR DEPOT [Suspect]
     Active Substance: OCTREOTIDE ACETATE
     Dosage: 2 DF (20 MG), QMO
     Route: 065
  6. METFORMIN [Concomitant]
     Active Substance: METFORMIN HYDROCHLORIDE
     Indication: DIABETES MELLITUS
     Dosage: 3 DF, QD
     Route: 065
  7. HYDROCHLOROTHIAZIDE. [Concomitant]
     Active Substance: HYDROCHLOROTHIAZIDE
     Indication: HYPERTENSION
     Dosage: 1 DF, QD
     Route: 065

REACTIONS (14)
  - Condition aggravated [Not Recovered/Not Resolved]
  - Confusional state [Recovering/Resolving]
  - Nervousness [Not Recovered/Not Resolved]
  - Stress [Recovering/Resolving]
  - Brain neoplasm [Not Recovered/Not Resolved]
  - Dysphemia [Recovering/Resolving]
  - Agitation [Not Recovered/Not Resolved]
  - Weight decreased [Not Recovered/Not Resolved]
  - Haemangioma [Not Recovered/Not Resolved]
  - Seizure [Recovered/Resolved]
  - Aphasia [Not Recovered/Not Resolved]
  - Inappropriate schedule of drug administration [Unknown]
  - Daydreaming [Recovered/Resolved]
  - Memory impairment [Recovering/Resolving]
